FAERS Safety Report 19118564 (Version 1)
Quarter: 2021Q2

REPORT INFORMATION
  Report Type: Spontaneous
  Country: NZ (occurrence: NZ)
  Receive Date: 20210409
  Receipt Date: 20210409
  Transmission Date: 20210717
  Serious: Yes (Other)
  Sender: FDA-Public Use
  Company Number: NZ-PFIZER INC-2021295565

PATIENT
  Age: 50 Year
  Sex: Female

DRUGS (2)
  1. GABAPENTIN. [Suspect]
     Active Substance: GABAPENTIN
     Indication: NEURALGIA
     Dosage: 1.8 G, QD
     Route: 048
     Dates: start: 20180328, end: 2019
  2. GABAPENTIN. [Suspect]
     Active Substance: GABAPENTIN
     Indication: NEURITIS

REACTIONS (1)
  - Withdrawal syndrome [Not Recovered/Not Resolved]

NARRATIVE: CASE EVENT DATE: 201806
